FAERS Safety Report 16483037 (Version 1)
Quarter: 2019Q2

REPORT INFORMATION
  Report Type: Spontaneous
  Country: US (occurrence: US)
  Receive Date: 20190514
  Receipt Date: 20190514
  Transmission Date: 20190711
  Serious: No
  Sender: FDA-Public Use
  Company Number: None

PATIENT

DRUGS (1)
  1. COPPER-CONTAINING INTRAUTERINE DEVICE (IUD) [Suspect]
     Active Substance: COPPER

REACTIONS (3)
  - Pregnancy with contraceptive device [None]
  - Product advertising issue [None]
  - Maternal exposure during pregnancy [None]
